FAERS Safety Report 6919303-1 (Version None)
Quarter: 2010Q3

REPORT INFORMATION
  Report Type: 
  Country: None (occurrence: None)
  Receive Date: 20100811
  Receipt Date: 20100804
  Transmission Date: 20110219
  Serious: Yes (Hospitalization)
  Sender: FDA-Public Use
  Company Number: A0866416A

PATIENT
  Age: 73 Year
  Sex: Female
  Weight: 88.2 kg

DRUGS (10)
  1. AVANDIA [Suspect]
     Dosage: 8MG PER DAY
     Route: 048
     Dates: end: 20060730
  2. AVANDAMET [Suspect]
     Route: 048
     Dates: start: 20051231, end: 20060201
  3. GLUCOPHAGE [Concomitant]
  4. AMARYL [Concomitant]
  5. LIPITOR [Concomitant]
  6. LOTENSIN [Concomitant]
  7. INSULIN [Concomitant]
  8. COZAAR [Concomitant]
  9. METFORMIN HCL [Concomitant]
  10. HYDROCHLOROTHIAZIDE [Concomitant]

REACTIONS (3)
  - COUGH [None]
  - DYSPHONIA [None]
  - MYOCARDIAL INFARCTION [None]
